FAERS Safety Report 11857922 (Version 3)
Quarter: 2015Q4

REPORT INFORMATION
  Report Type: Report from Study
  Country: CZ (occurrence: CZ)
  Receive Date: 20151222
  Receipt Date: 20151230
  Transmission Date: 20160305
  Serious: Yes (Hospitalization, Other)
  Sender: FDA-Public Use
  Company Number: CZ-JNJFOC-20151211904

PATIENT
  Age: 59 Year
  Sex: Female
  Weight: 55 kg

DRUGS (11)
  1. SIMPONI [Suspect]
     Active Substance: GOLIMUMAB
     Indication: RHEUMATOID ARTHRITIS
     Route: 058
     Dates: start: 20141229, end: 20150129
  2. MEDROL [Concomitant]
     Active Substance: METHYLPREDNISOLONE
     Indication: RHEUMATOID ARTHRITIS
     Route: 048
  3. PRESTARIUM NEO [Concomitant]
     Active Substance: PERINDOPRIL ARGININE
     Route: 048
  4. CALCICHEW [Concomitant]
     Active Substance: CALCIUM CARBONATE
     Route: 048
  5. NOLPAZA [Concomitant]
     Active Substance: PANTOPRAZOLE SODIUM
     Route: 048
     Dates: start: 201501
  6. ARAVA [Concomitant]
     Active Substance: LEFLUNOMIDE
     Indication: RHEUMATOID ARTHRITIS
     Route: 048
  7. PROLIA [Concomitant]
     Active Substance: DENOSUMAB
     Route: 058
     Dates: start: 201406
  8. ROSUCARD [Concomitant]
     Route: 048
     Dates: start: 201501
  9. VEROSPIRON [Concomitant]
     Active Substance: SPIRONOLACTONE
     Route: 048
     Dates: start: 201501
  10. CLOPIDOGREL [Concomitant]
     Active Substance: CLOPIDOGREL BISULFATE
     Route: 048
     Dates: start: 201501
  11. ANOPYRIN [Concomitant]
     Active Substance: ASPIRIN
     Route: 048
     Dates: start: 201501

REACTIONS (2)
  - Acute myocardial infarction [Recovered/Resolved with Sequelae]
  - Cellulitis [Recovered/Resolved]

NARRATIVE: CASE EVENT DATE: 20150125
